FAERS Safety Report 6146870-0 (Version None)
Quarter: 2009Q2

REPORT INFORMATION
  Report Type: 
  Country: None (occurrence: None)
  Receive Date: 20090406
  Receipt Date: 20090406
  Transmission Date: 20091009
  Serious: Yes (Death)
  Sender: FDA-Public Use
  Company Number: None

PATIENT
  Age: 12 Month
  Sex: Female
  Weight: 6.4 kg

DRUGS (7)
  1. KALETRA [Suspect]
     Indication: HIV INFECTION
     Dosage: 160 MILLIGRAMS TWICE A DAY ORALLY
     Route: 048
     Dates: start: 20090116, end: 20090207
  2. ZIDOVUDINE [Suspect]
     Indication: HIV INFECTION
     Dosage: 120 MILLIGRAMS TWICE A DAY ORALLY
     Route: 048
     Dates: start: 20090116, end: 20090207
  3. LAMIVUDINE [Suspect]
     Indication: HIV INFECTION
     Dosage: 40 MILLIGRAMS TWICE A DAY ORALLY
     Route: 048
     Dates: start: 20090116, end: 20090207
  4. MULTIVITAMIN SYRUP [Concomitant]
  5. PARACETAMOL [Concomitant]
  6. MICONAZOLE [Concomitant]
  7. COTRIMOXAZOLE [Concomitant]

REACTIONS (22)
  - ANAEMIA [None]
  - BLOOD POTASSIUM INCREASED [None]
  - BLOOD SODIUM INCREASED [None]
  - BRONCHOPNEUMONIA [None]
  - CARDIAC FAILURE CONGESTIVE [None]
  - CRYING [None]
  - DECREASED APPETITE [None]
  - DYSPNOEA [None]
  - GRUNTING [None]
  - HEPATOMEGALY [None]
  - HYPOTONIA [None]
  - IMMUNE RECONSTITUTION SYNDROME [None]
  - IRRITABILITY [None]
  - LETHARGY [None]
  - MONOCYTE COUNT INCREASED [None]
  - PALLOR [None]
  - PERIPHERAL COLDNESS [None]
  - TACHYCARDIA [None]
  - TACHYPNOEA [None]
  - TUBERCULOSIS [None]
  - VOMITING [None]
  - WHEEZING [None]
